FAERS Safety Report 10415247 (Version 1)
Quarter: 2014Q2

REPORT INFORMATION
  Report Type: Spontaneous
  Country: US (occurrence: None)
  Receive Date: 20140604
  Receipt Date: 20140604
  Transmission Date: 20141212
  Serious: No
  Sender: FDA-Public Use
  Company Number: 163-POMAL-14022189

PATIENT
  Age: 74 Year
  Sex: Male

DRUGS (1)
  1. POMALYST (POMALIDOMIDE) (4 MILLIGRAM, CAPSULES) [Suspect]
     Indication: PLASMA CELL MYELOMA
     Route: 048
     Dates: start: 201305, end: 20140207

REACTIONS (5)
  - Drug intolerance [None]
  - Speech disorder [None]
  - Drug ineffective [None]
  - Dyspnoea [None]
  - Confusional state [None]
